FAERS Safety Report 20579908 (Version 3)
Quarter: 2022Q2

REPORT INFORMATION
  Report Type: Report from Study
  Country: US (occurrence: US)
  Receive Date: 20220310
  Receipt Date: 20220510
  Transmission Date: 20220721
  Serious: Yes (Hospitalization, Other)
  Sender: FDA-Public Use
  Company Number: US-TAKEDA-2022TUS015181

PATIENT
  Sex: Female
  Weight: 90.7 kg

DRUGS (39)
  1. .ALPHA.1-PROTEINASE INHIBITOR HUMAN [Suspect]
     Active Substance: .ALPHA.1-PROTEINASE INHIBITOR HUMAN
     Indication: Alpha-1 anti-trypsin decreased
     Dosage: 60 MILLIGRAM/KILOGRAM, 1/WEEK
     Route: 042
     Dates: start: 20210806
  2. .ALPHA.1-PROTEINASE INHIBITOR HUMAN [Suspect]
     Active Substance: .ALPHA.1-PROTEINASE INHIBITOR HUMAN
     Indication: Alpha-1 anti-trypsin decreased
     Dosage: 60 MILLIGRAM/KILOGRAM, 1/WEEK
     Route: 042
     Dates: start: 20210806
  3. .ALPHA.1-PROTEINASE INHIBITOR HUMAN [Suspect]
     Active Substance: .ALPHA.1-PROTEINASE INHIBITOR HUMAN
     Indication: Immunodeficiency common variable
     Dosage: 60 MILLIGRAM/KILOGRAM, 1/WEEK
     Route: 042
     Dates: start: 20211014
  4. .ALPHA.1-PROTEINASE INHIBITOR HUMAN [Suspect]
     Active Substance: .ALPHA.1-PROTEINASE INHIBITOR HUMAN
     Indication: Immunodeficiency common variable
     Dosage: 60 MILLIGRAM/KILOGRAM, 1/WEEK
     Route: 042
     Dates: start: 20211014
  5. HYDROCORTISONE [Concomitant]
     Active Substance: HYDROCORTISONE
  6. DIPHENHYDRAMINE [Concomitant]
     Active Substance: DIPHENHYDRAMINE
  7. HEPARIN [Concomitant]
     Active Substance: HEPARIN SODIUM
  8. LIDOCAINE [Concomitant]
     Active Substance: LIDOCAINE
  9. SODIUM CHLORIDE [Concomitant]
     Active Substance: SODIUM CHLORIDE
  10. EPINEPHRINE [Concomitant]
     Active Substance: EPINEPHRINE
  11. Nac [Concomitant]
  12. ALDACTONE [Concomitant]
     Active Substance: SPIRONOLACTONE
  13. PREDNISONE [Concomitant]
     Active Substance: PREDNISONE
  14. POTASSIUM [Concomitant]
     Active Substance: POTASSIUM
  15. HUMALOG [Concomitant]
     Active Substance: INSULIN LISPRO
  16. LANTUS [Concomitant]
     Active Substance: INSULIN GLARGINE
  17. CEFUROXIME [Concomitant]
     Active Substance: CEFUROXIME
  18. VITAMIN C [Concomitant]
     Active Substance: ASCORBIC ACID
  19. DOXYCYCLINE [Concomitant]
     Active Substance: DOXYCYCLINE
  20. LIPITOR [Concomitant]
     Active Substance: ATORVASTATIN CALCIUM
  21. VERAPAMIL [Concomitant]
     Active Substance: VERAPAMIL HYDROCHLORIDE
  22. FLUTICASONE [Concomitant]
     Active Substance: FLUTICASONE
  23. FERROUS SULFATE [Concomitant]
     Active Substance: FERROUS SULFATE
  24. IPRATROPIUM BROMIDE [Concomitant]
     Active Substance: IPRATROPIUM BROMIDE
  25. VANCOMYCIN [Concomitant]
     Active Substance: VANCOMYCIN
  26. SPIRIVA [Concomitant]
     Active Substance: TIOTROPIUM BROMIDE MONOHYDRATE
  27. OXYCODONE [Concomitant]
     Active Substance: OXYCODONE
  28. GABAPENTIN [Concomitant]
     Active Substance: GABAPENTIN
  29. OXYGEN [Concomitant]
     Active Substance: OXYGEN
  30. ZOFRAN [Concomitant]
     Active Substance: ONDANSETRON HYDROCHLORIDE
  31. IBUPROFEN [Concomitant]
     Active Substance: IBUPROFEN
  32. ALBUTEROL\IPRATROPIUM [Concomitant]
     Active Substance: ALBUTEROL\IPRATROPIUM
  33. ALLOPURINOL [Concomitant]
     Active Substance: ALLOPURINOL
  34. OMEPRAZOLE [Concomitant]
     Active Substance: OMEPRAZOLE
  35. ANORO ELLIPTA [Concomitant]
     Active Substance: UMECLIDINIUM BROMIDE\VILANTEROL TRIFENATATE
  36. DALIRESP [Concomitant]
     Active Substance: ROFLUMILAST
  37. CLARITIN [Concomitant]
     Active Substance: LORATADINE
  38. QVAR [Concomitant]
     Active Substance: BECLOMETHASONE DIPROPIONATE
  39. SODIUM CHLORIDE [Concomitant]
     Active Substance: SODIUM CHLORIDE

REACTIONS (4)
  - Sepsis [Unknown]
  - Device related infection [Unknown]
  - Pulmonary embolism [Recovered/Resolved]
  - Dyspnoea [Unknown]
